FAERS Safety Report 13638982 (Version 5)
Quarter: 2019Q1

REPORT INFORMATION
  Report Type: Spontaneous
  Country: FR (occurrence: FR)
  Receive Date: 20170609
  Receipt Date: 20190222
  Transmission Date: 20190417
  Serious: Yes (Death, Life-Threatening, Hospitalization, Other)
  Sender: FDA-Public Use
  Company Number: FR-SEATTLE GENETICS-2017SGN01399

PATIENT
  Age: 76 Year
  Sex: Male
  Weight: 62 kg

DRUGS (8)
  1. PARACETAMOL [Concomitant]
     Active Substance: ACETAMINOPHEN
     Indication: MYCOSIS FUNGOIDES
     Dosage: 1 G, UNK
     Route: 042
     Dates: start: 20170410, end: 20170510
  2. BENDAMUSTINE [Suspect]
     Active Substance: BENDAMUSTINE
     Indication: MYCOSIS FUNGOIDES
     Dosage: 160 MG, UNK
     Route: 042
     Dates: start: 20170608, end: 20170608
  3. BENDAMUSTINE ACCORD [Suspect]
     Active Substance: BENDAMUSTINE
     Indication: MYCOSIS FUNGOIDES
     Dosage: 162 MG, UNK
     Route: 042
     Dates: start: 20170411, end: 20170509
  4. ONDANSETRON [Concomitant]
     Active Substance: ONDANSETRON
     Indication: MYCOSIS FUNGOIDES
     Dosage: 8 MG, UNK
     Route: 042
     Dates: start: 20170410, end: 20170509
  5. ONDANSETRON                       /00955301/ [Concomitant]
     Active Substance: ONDANSETRON
     Indication: MYCOSIS FUNGOIDES
     Dosage: 8 MG, UNK
     Route: 042
     Dates: start: 20170410, end: 20170509
  6. ADCETRIS [Suspect]
     Active Substance: BRENTUXIMAB VEDOTIN
     Indication: MYCOSIS FUNGOIDES
     Dosage: 122 MG, UNK
     Route: 042
     Dates: start: 20170410, end: 20170509
  7. DEXCHLORPHENIRAMINE MALEATE. [Concomitant]
     Active Substance: DEXCHLORPHENIRAMINE MALEATE
     Indication: MYCOSIS FUNGOIDES
     Dosage: 5 MG, UNK
     Route: 042
     Dates: start: 20170410, end: 20170509
  8. GEMOX                              /08454001/ [Concomitant]
     Active Substance: GEMCITABINE HYDROCHLORIDE\OXALIPLATIN
     Indication: MYCOSIS FUNGOIDES
     Dosage: UNK
     Route: 065
     Dates: start: 20171228, end: 20180302

REACTIONS (12)
  - General physical health deterioration [Fatal]
  - Cytokine release syndrome [Recovered/Resolved]
  - Off label use [Unknown]
  - Lung disorder [Fatal]
  - Cytomegalovirus infection [Recovered/Resolved]
  - Anaphylactic reaction [Recovered/Resolved]
  - Dermatitis exfoliative generalised [Fatal]
  - Mycosis fungoides [Fatal]
  - Rash erythematous [Recovering/Resolving]
  - Chills [Recovering/Resolving]
  - Weight decreased [Unknown]
  - Hyperthermia [Recovering/Resolving]

NARRATIVE: CASE EVENT DATE: 20170410
